FAERS Safety Report 10875235 (Version 4)
Quarter: 2016Q3

REPORT INFORMATION
  Report Type: Spontaneous
  Country: US (occurrence: US)
  Receive Date: 20150227
  Receipt Date: 20160823
  Transmission Date: 20161109
  Serious: Yes (Hospitalization, Disabling, Other)
  Sender: FDA-Public Use
  Company Number: US-009507513-1109USA00857

PATIENT
  Sex: Female

DRUGS (2)
  1. FOSAMAX [Suspect]
     Active Substance: ALENDRONATE SODIUM
     Indication: ARTHRITIS
     Dosage: 70 MG, QW
     Route: 048
     Dates: start: 200405, end: 20060817
  2. ENBREL [Concomitant]
     Active Substance: ETANERCEPT
     Indication: ARTHRITIS
     Dosage: UNK
     Route: 065
     Dates: start: 2000, end: 2010

REACTIONS (13)
  - Femur fracture [Unknown]
  - Neck surgery [Unknown]
  - Wrist fracture [Unknown]
  - Nephrolithiasis [Unknown]
  - Hand fracture [Unknown]
  - Knee operation [Unknown]
  - Osteoporosis [Unknown]
  - Off label use [Unknown]
  - Herpes zoster [Unknown]
  - Osteopenia [Unknown]
  - Spinal osteoarthritis [Unknown]
  - Knee operation [Unknown]
  - Neck surgery [Unknown]

NARRATIVE: CASE EVENT DATE: 2004
